FAERS Safety Report 21707870 (Version 2)
Quarter: 2022Q4

REPORT INFORMATION
  Report Type: Spontaneous
  Country: US (occurrence: US)
  Receive Date: 20221209
  Receipt Date: 20221216
  Transmission Date: 20230112
  Serious: Yes (Other)
  Sender: FDA-Public Use
  Company Number: US-AMERICAN REGENT INC-2022003437

PATIENT

DRUGS (2)
  1. GEMCITABINE [Suspect]
     Active Substance: GEMCITABINE
     Indication: Adenocarcinoma pancreas
     Dosage: 1000 MG/ M2 INTRAVENOUSLY ON DAYS 1, 8, 15
     Route: 042
  2. ALISERTIB [Suspect]
     Active Substance: ALISERTIB
     Indication: Adenocarcinoma pancreas
     Dosage: 50 MG ON DAYS 1?3, 8?10, AND 15?17 OF A 28-DAY TREATMENT CYCLE
     Route: 048

REACTIONS (6)
  - Leukopenia [Unknown]
  - Hyponatraemia [Unknown]
  - Dehydration [Unknown]
  - Mucosal inflammation [Unknown]
  - Lymphopenia [Unknown]
  - Febrile neutropenia [Unknown]
